FAERS Safety Report 4766249-3 (Version None)
Quarter: 2005Q3

REPORT INFORMATION
  Report Type: 
  Country: None (occurrence: None)
  Receive Date: 20050909
  Receipt Date: 20050901
  Transmission Date: 20060218
  Serious: Yes (Death, Hospitalization)
  Sender: FDA-Public Use
  Company Number: 2005EU001949

PATIENT
  Age: 58 Year
  Sex: Male

DRUGS (11)
  1. PROGRAF [Suspect]
     Indication: RENAL TRANSPLANT
     Dosage: 0.50 MG, UID/QD, UNKNOWN
     Dates: start: 20040301, end: 20050510
  2. NEORAL [Suspect]
     Indication: RENAL TRANSPLANT
     Dosage: UNKNOWN/D
     Route: 065
     Dates: end: 20040301
  3. CELLCEPT [Suspect]
     Indication: RENAL TRANSPLANT
     Dosage: UNKNOWN/D
     Route: 065
     Dates: start: 20040301, end: 20040701
  4. ARANESP (DARBEPOETIN ALFA) 30UG [Suspect]
     Dosage: 30.00 DF, UNKNOWN/D
     Route: 065
     Dates: start: 20050201, end: 20050510
  5. TARDYFERON/SCH/ (IRON, FERROUS SULFATE) [Concomitant]
  6. FORTUM (CEFTAZIDIME PENTAHYDRATE) [Concomitant]
  7. FUROSEMIDE [Concomitant]
  8. EPREX [Concomitant]
  9. ALLOPURINOL [Concomitant]
  10. AMIKIN [Concomitant]
  11. VANCOMYCIN [Concomitant]

REACTIONS (19)
  - DEPRESSED LEVEL OF CONSCIOUSNESS [None]
  - DIARRHOEA [None]
  - DIARRHOEA INFECTIOUS [None]
  - EFFUSION [None]
  - GASTROINTESTINAL INFLAMMATION [None]
  - HAEMOLYTIC ANAEMIA [None]
  - HEPATITIS [None]
  - HEPATITIS CHOLESTATIC [None]
  - HISTIOCYTOSIS HAEMATOPHAGIC [None]
  - HYPERTHERMIA [None]
  - HYPERTRIGLYCERIDAEMIA [None]
  - HYPOGLOBULINAEMIA [None]
  - LARGE INTESTINAL HAEMORRHAGE [None]
  - LYMPHOMA [None]
  - METABOLIC ACIDOSIS [None]
  - MICROCYTIC ANAEMIA [None]
  - MULTI-ORGAN FAILURE [None]
  - RENAL IMPAIRMENT [None]
  - SIGMOIDITIS [None]
